FAERS Safety Report 8854528 (Version 1)
Quarter: 2012Q4

REPORT INFORMATION
  Report Type: 
  Country: US (occurrence: US)
  Receive Date: 20121023
  Receipt Date: 20121023
  Transmission Date: 20130627
  Serious: Yes (Hospitalization)
  Sender: FDA-Public Use
  Company Number: US-VERTEX PHARMACEUTICAL INC.-AE-2012-004169

PATIENT
  Age: 62 None
  Sex: Male
  Weight: 142.4 kg

DRUGS (4)
  1. INCIVEK [Suspect]
     Indication: HEPATITIS C
     Dosage: 750 mg, tid
     Route: 048
     Dates: start: 20120216, end: 20120317
  2. PEGINTRON                          /01543001/ [Suspect]
     Indication: HEPATITIS C
     Route: 058
     Dates: start: 20120216
  3. RIBAVIRIN [Suspect]
     Indication: HEPATITIS C
     Dosage: 600 mg, bid
     Route: 048
     Dates: start: 20120216, end: 20120326
  4. NORVASC [Concomitant]
     Dates: end: 20120309

REACTIONS (4)
  - Gastrointestinal haemorrhage [Unknown]
  - Rectal haemorrhage [Unknown]
  - Large intestine polyp [Unknown]
  - Blood urine present [Not Recovered/Not Resolved]
